FAERS Safety Report 10251218 (Version 3)
Quarter: 2015Q1

REPORT INFORMATION
  Report Type: Report from Study
  Country: CO (occurrence: CO)
  Receive Date: 20140620
  Receipt Date: 20150305
  Transmission Date: 20150720
  Serious: Yes (Death, Hospitalization, Other)
  Sender: FDA-Public Use
  Company Number: CO-ASTRAZENECA-2014SE44503

PATIENT
  Age: 25680 Day
  Sex: Male

DRUGS (6)
  1. ASA [Concomitant]
     Active Substance: ASPIRIN
  2. ATORVASTATIN [Concomitant]
     Active Substance: ATORVASTATIN
  3. ENALAPRIL [Concomitant]
     Active Substance: ENALAPRIL
  4. CARVEDILOL. [Concomitant]
     Active Substance: CARVEDILOL
  5. OMEPRAZOLE. [Concomitant]
     Active Substance: OMEPRAZOLE
  6. BRILINTA [Suspect]
     Active Substance: TICAGRELOR
     Indication: INFARCTION
     Route: 048
     Dates: start: 20140228

REACTIONS (15)
  - Chronic obstructive pulmonary disease [Unknown]
  - Pain in extremity [Unknown]
  - Death [Fatal]
  - Angiosclerosis [Unknown]
  - Hypoacusis [Unknown]
  - Dyspnoea [Recovered/Resolved with Sequelae]
  - Abdominal pain [Unknown]
  - Productive cough [Unknown]
  - Acute pulmonary oedema [Unknown]
  - Aortic aneurysm [Unknown]
  - Hypotension [Unknown]
  - Cardiac failure [Recovered/Resolved with Sequelae]
  - Chest pain [Recovered/Resolved with Sequelae]
  - Sputum purulent [Unknown]
  - Limb injury [Unknown]

NARRATIVE: CASE EVENT DATE: 2014
